FAERS Safety Report 18068536 (Version 2)
Quarter: 2020Q4

REPORT INFORMATION
  Report Type: Spontaneous
  Country: HR (occurrence: HR)
  Receive Date: 20200724
  Receipt Date: 20201021
  Transmission Date: 20210113
  Serious: Yes (Other)
  Sender: FDA-Public Use
  Company Number: NVSC2020HR203858

PATIENT
  Age: 50 Year
  Sex: Female
  Weight: 96 kg

DRUGS (1)
  1. COSENTYX [Suspect]
     Active Substance: SECUKINUMAB
     Indication: PSORIATIC ARTHROPATHY
     Dosage: 300 MG, QMO
     Route: 058
     Dates: start: 20170113, end: 20181212

REACTIONS (9)
  - Flushing [Unknown]
  - Papule [Unknown]
  - Hypersensitivity vasculitis [Recovered/Resolved]
  - Erythema [Unknown]
  - Haematuria [Recovered/Resolved]
  - Proteinuria [Recovered/Resolved]
  - Urticaria [Unknown]
  - Rash [Unknown]
  - Blood immunoglobulin A increased [Recovered/Resolved]

NARRATIVE: CASE EVENT DATE: 20180618
